FAERS Safety Report 8146612-3 (Version None)
Quarter: 2012Q1

REPORT INFORMATION
  Report Type: 
  Country: None (occurrence: None)
  Receive Date: 20120217
  Receipt Date: 20110531
  Transmission Date: 20120608
  Serious: No
  Sender: FDA-Public Use
  Company Number: US-ABBOTT-11P-163-0729169-00

PATIENT
  Sex: Female
  Weight: 61.29 kg

DRUGS (6)
  1. SERTRALINE HYDROCHLORIDE [Concomitant]
     Indication: PRODUCT USED FOR UNKNOWN INDICATION
  2. SIMCOR [Suspect]
     Indication: PRODUCT USED FOR UNKNOWN INDICATION
  3. LUTERA [Concomitant]
     Indication: PRODUCT USED FOR UNKNOWN INDICATION
  4. ASPIRIN [Concomitant]
     Indication: PRODUCT USED FOR UNKNOWN INDICATION
  5. SUMATRIPTAN [Concomitant]
     Indication: PRODUCT USED FOR UNKNOWN INDICATION
  6. METOPROLOL TARTRATE [Concomitant]
     Indication: PRODUCT USED FOR UNKNOWN INDICATION

REACTIONS (3)
  - PARAESTHESIA [None]
  - ERYTHEMA [None]
  - FLUSHING [None]
